FAERS Safety Report 7150348-5 (Version None)
Quarter: 2010Q4

REPORT INFORMATION
  Report Type: 
  Country: None (occurrence: None)
  Receive Date: 20101210
  Receipt Date: 20101210
  Transmission Date: 20110411
  Serious: Yes (Other)
  Sender: FDA-Public Use
  Company Number: GB-ABBOTT-09P-167-0586796-00

PATIENT
  Sex: Male

DRUGS (7)
  1. KLARICID [Suspect]
     Indication: PRODUCT USED FOR UNKNOWN INDICATION
  2. SIMVASTATIN [Concomitant]
     Indication: PRODUCT USED FOR UNKNOWN INDICATION
  3. BISOPROLOL [Concomitant]
     Indication: PRODUCT USED FOR UNKNOWN INDICATION
  4. GLICLAZIDE [Concomitant]
     Indication: PRODUCT USED FOR UNKNOWN INDICATION
  5. LOSARTAN [Concomitant]
     Indication: PRODUCT USED FOR UNKNOWN INDICATION
  6. CO-DYDRAMOL [Concomitant]
     Indication: PRODUCT USED FOR UNKNOWN INDICATION
  7. PARACETAMOL [Concomitant]
     Indication: PRODUCT USED FOR UNKNOWN INDICATION

REACTIONS (10)
  - ADVERSE DRUG REACTION [None]
  - ASTHENIA [None]
  - DYSGEUSIA [None]
  - FATIGUE [None]
  - HYPOPHAGIA [None]
  - LUNG DISORDER [None]
  - MOBILITY DECREASED [None]
  - MUSCULAR WEAKNESS [None]
  - SYNCOPE [None]
  - WEIGHT DECREASED [None]
